FAERS Safety Report 10192991 (Version 2)
Quarter: 2014Q2

REPORT INFORMATION
  Report Type: Report from Study
  Country: FR (occurrence: FR)
  Receive Date: 20140524
  Receipt Date: 20140524
  Transmission Date: 20141212
  Serious: Yes (Hospitalization)
  Sender: FDA-Public Use
  Company Number: PHHY2014FR044703

PATIENT
  Age: 42 Year
  Sex: Male

DRUGS (5)
  1. LDK378 [Suspect]
     Indication: LUNG ADENOCARCINOMA
     Dosage: 750 MG, QD
     Route: 048
     Dates: start: 20140120
  2. LDK378 [Interacting]
     Dosage: 750 MG, QD
     Route: 048
     Dates: start: 20140323
  3. PREVISCAN [Interacting]
     Indication: PULMONARY EMBOLISM
     Dosage: 0.75 DF, QD (20 MG TABLET)
     Route: 065
     Dates: start: 2011, end: 20140312
  4. INEXIUM//ESOMEPRAZOLE MAGNESIUM [Concomitant]
     Indication: ABDOMINAL PAIN
     Dosage: 40 MG, QD
     Route: 065
     Dates: start: 201401
  5. SPASFON [Concomitant]
     Indication: ABDOMINAL PAIN
     Dosage: 2 DF, DAILY (80 MG TAB)
     Route: 065
     Dates: start: 201401

REACTIONS (2)
  - Drug interaction [Recovered/Resolved]
  - Cardiac tamponade [Recovered/Resolved]
